FAERS Safety Report 11652896 (Version 1)
Quarter: 2015Q4

REPORT INFORMATION
  Report Type: Spontaneous
  Country: US (occurrence: None)
  Receive Date: 20151021
  Receipt Date: 20151021
  Transmission Date: 20160304
  Serious: Yes (Death, Hospitalization)
  Sender: FDA-Public Use
  Company Number: 1713747-2015-999398

PATIENT
  Age: 31 Year
  Sex: Male

DRUGS (24)
  1. K@HOME [Concomitant]
  2. NORCO [Concomitant]
     Active Substance: ACETAMINOPHEN\HYDROCODONE BITARTRATE
  3. SODIUM BICARBONATE. [Concomitant]
     Active Substance: SODIUM BICARBONATE
  4. SENNAKOT [Concomitant]
  5. NEBIVOLOL. [Concomitant]
     Active Substance: NEBIVOLOL
  6. BISACODYL. [Concomitant]
     Active Substance: BISACODYL
  7. SALINE, 0.9%, 1L, 12PK [Suspect]
     Active Substance: SODIUM CHLORIDE
     Indication: CHRONIC KIDNEY DISEASE
  8. AMLODIPINE [Concomitant]
     Active Substance: AMLODIPINE BESYLATE
  9. RANITIDINE [Concomitant]
     Active Substance: RANITIDINE\RANITIDINE HYDROCHLORIDE
  10. CALTRATE [Concomitant]
     Active Substance: CALCIUM CARBONATE
  11. IRON [Concomitant]
     Active Substance: IRON
  12. DIALYSATE FORMULA # 2251 [Concomitant]
  13. CHLORASEPTIC SORE THROAT [Concomitant]
     Active Substance: PHENOL
  14. TYLENOL [Concomitant]
     Active Substance: ACETAMINOPHEN
  15. MULTIVITAMIN [Concomitant]
     Active Substance: VITAMINS
  16. F160NRE DIALYZER [Concomitant]
  17. LOSARTAN. [Concomitant]
     Active Substance: LOSARTAN
  18. AZITHROMYCIN [Concomitant]
     Active Substance: AZITHROMYCIN ANHYDROUS
  19. GUAIFENESIN. [Concomitant]
     Active Substance: GUAIFENESIN
  20. PREDNISONE. [Concomitant]
     Active Substance: PREDNISONE
  21. SEVELAMER [Concomitant]
     Active Substance: SEVELAMER
  22. BYSTOLIC [Concomitant]
     Active Substance: NEBIVOLOL HYDROCHLORIDE
  23. FMC BLOODLINES [Concomitant]
     Active Substance: DEVICE
  24. DOCUSATE [Concomitant]
     Active Substance: DOCUSATE

REACTIONS (14)
  - Tachycardia [None]
  - Cardiomyopathy [None]
  - Enterococcus test positive [None]
  - Sepsis [None]
  - Gallbladder disorder [None]
  - Fungal infection [None]
  - Cardiac failure [None]
  - Cholelithiasis [None]
  - Pancreatitis [None]
  - Metabolic encephalopathy [None]
  - Pulseless electrical activity [None]
  - Asthenia [None]
  - Hypotension [None]
  - Cholecystitis [None]

NARRATIVE: CASE EVENT DATE: 20131116
